FAERS Safety Report 9559189 (Version 1)
Quarter: 2013Q3

REPORT INFORMATION
  Report Type: Spontaneous
  Country: US (occurrence: US)
  Receive Date: 20130927
  Receipt Date: 20130927
  Transmission Date: 20140515
  Serious: Yes (Other)
  Sender: FDA-Public Use
  Company Number: US-SHIRE-ALL1-2013-06495

PATIENT
  Sex: Male
  Weight: 66.67 kg

DRUGS (4)
  1. VYVANSE [Suspect]
     Indication: ATTENTION DEFICIT/HYPERACTIVITY DISORDER
     Dosage: 30 MG, 1X/DAY:QD
     Route: 048
     Dates: start: 2010, end: 2013
  2. VYVANSE [Suspect]
     Dosage: 20 MG, 2X/DAY:BID
     Route: 048
     Dates: start: 2013
  3. NOVOLOG [Concomitant]
     Indication: DIABETES MELLITUS
     Dosage: SLIDING SCALE INSULIN PUMP, OTHER
     Route: 050
     Dates: start: 1996
  4. LIPITOR [Concomitant]
     Indication: BLOOD CHOLESTEROL INCREASED
     Dosage: 10 MG, 1X/DAY:QD
     Route: 048
     Dates: start: 2006

REACTIONS (7)
  - Adrenal insufficiency [Not Recovered/Not Resolved]
  - Addison^s disease [Not Recovered/Not Resolved]
  - Disturbance in attention [Recovered/Resolved]
  - Hypersomnia [Not Recovered/Not Resolved]
  - Fatigue [Not Recovered/Not Resolved]
  - Drug effect decreased [Recovered/Resolved]
  - Drug prescribing error [Not Recovered/Not Resolved]
